FAERS Safety Report 18540933 (Version 1)
Quarter: 2020Q4

REPORT INFORMATION
  Report Type: Spontaneous
  Country: US (occurrence: US)
  Receive Date: 20201124
  Receipt Date: 20201124
  Transmission Date: 20210114
  Serious: No
  Sender: FDA-Public Use
  Company Number: US-CADILA HEALTHCARE LIMITED-US-ZYDUS-055370

PATIENT

DRUGS (2)
  1. BOSENTAN 125 MG TABLETS [Suspect]
     Active Substance: BOSENTAN
     Indication: PULMONARY ARTERIAL HYPERTENSION
     Dosage: 125 MILLIGRAM, BID
     Route: 065
     Dates: start: 20200217
  2. AMLODIPINE [Concomitant]
     Active Substance: AMLODIPINE BESYLATE
     Indication: PRODUCT USED FOR UNKNOWN INDICATION
     Dosage: UNK

REACTIONS (6)
  - Hypersensitivity [Unknown]
  - Headache [Unknown]
  - Diarrhoea [Unknown]
  - Facial pain [Unknown]
  - Nasal congestion [Unknown]
  - Influenza like illness [Unknown]

NARRATIVE: CASE EVENT DATE: 2020
